FAERS Safety Report 8729798 (Version 3)
Quarter: 2013Q1

REPORT INFORMATION
  Report Type: Other
  Country: GB (occurrence: GB)
  Receive Date: 20120817
  Receipt Date: 20130213
  Transmission Date: 20140127
  Serious: Yes (Other)
  Sender: FDA-Public Use
  Company Number: GB-WATSON-2012-14363

PATIENT
  Age: 60 Year
  Sex: Female

DRUGS (2)
  1. MIRTAZAPINE (UNKNOWN) [Suspect]
     Indication: DEPRESSION
     Dosage: 15MG UNKNOWN
     Route: 065
     Dates: start: 201111, end: 201201
  2. SERTRALINE [Concomitant]
     Indication: DEPRESSION
     Dosage: UNKNOWN
     Route: 065

REACTIONS (26)
  - Hyperhidrosis [Not Recovered/Not Resolved]
  - Pyrexia [Not Recovered/Not Resolved]
  - Paraesthesia [Not Recovered/Not Resolved]
  - Anxiety [Not Recovered/Not Resolved]
  - Withdrawal syndrome [Not Recovered/Not Resolved]
  - Decreased appetite [Not Recovered/Not Resolved]
  - Oropharyngeal pain [Not Recovered/Not Resolved]
  - Pharyngeal oedema [Not Recovered/Not Resolved]
  - Sensation of foreign body [Not Recovered/Not Resolved]
  - Gastrointestinal disorder [Not Recovered/Not Resolved]
  - Jaw disorder [Not Recovered/Not Resolved]
  - Eye pain [Not Recovered/Not Resolved]
  - Tremor [Not Recovered/Not Resolved]
  - Nervousness [Not Recovered/Not Resolved]
  - Insomnia [Not Recovered/Not Resolved]
  - Pruritus [Not Recovered/Not Resolved]
  - Tongue disorder [Not Recovered/Not Resolved]
  - Chapped lips [Not Recovered/Not Resolved]
  - Burning sensation [Unknown]
  - Arthralgia [Unknown]
  - Dysphagia [Unknown]
  - Weight decreased [Unknown]
  - Tongue blistering [Unknown]
  - Dizziness [Unknown]
  - Dry throat [Unknown]
  - Malocclusion [Unknown]
